FAERS Safety Report 19993796 (Version 16)
Quarter: 2022Q4

REPORT INFORMATION
  Report Type: Spontaneous
  Country: DE (occurrence: DE)
  Receive Date: 20211025
  Receipt Date: 20221005
  Transmission Date: 20230113
  Serious: Yes (Hospitalization, Other)
  Sender: FDA-Public Use
  Company Number: DE-002147023-NVSC2021DE222834

PATIENT
  Age: 74 Year
  Sex: Male

DRUGS (56)
  1. PANTOPRAZOLE [Suspect]
     Active Substance: PANTOPRAZOLE
     Indication: Abdominal discomfort
     Dosage: 20 MG, 1X/DAY
     Route: 065
     Dates: end: 201705
  2. DOXAZOSIN MESYLATE [Suspect]
     Active Substance: DOXAZOSIN MESYLATE
     Indication: Blood pressure abnormal
     Dosage: 16 MILLIGRAM, QD
     Route: 065
  3. DOXAZOSIN MESYLATE [Suspect]
     Active Substance: DOXAZOSIN MESYLATE
     Dosage: 2 DF, 1X/DAY
     Route: 065
  4. DOXAZOSIN MESYLATE [Suspect]
     Active Substance: DOXAZOSIN MESYLATE
     Dosage: 8 MG, 2X/DAY (0-2-0-0)
     Route: 065
  5. DOXAZOSIN MESYLATE [Suspect]
     Active Substance: DOXAZOSIN MESYLATE
     Dosage: 4 MG (1/2-2-2-0)
     Route: 065
  6. DOXAZOSIN MESYLATE [Suspect]
     Active Substance: DOXAZOSIN MESYLATE
     Dosage: 8 MILLIGRAM (RETARD)SUSTAINED RELEASE
     Route: 065
  7. DOXAZOSIN MESYLATE [Suspect]
     Active Substance: DOXAZOSIN MESYLATE
     Dosage: 8 MILLIGRAM, BID (0-1-0-1)
     Route: 065
  8. DOXAZOSIN MESYLATE [Suspect]
     Active Substance: DOXAZOSIN MESYLATE
     Dosage: 8 MG (2 AND 1/2)
     Route: 065
  9. MINOXIDIL [Suspect]
     Active Substance: MINOXIDIL
     Indication: Blood pressure management
     Dosage: 2.5 UNK, 3X/DAY (1-1-1)
     Route: 065
  10. TAMSULOSIN HYDROCHLORIDE [Suspect]
     Active Substance: TAMSULOSIN HYDROCHLORIDE
     Indication: Prostate infection
     Dosage: 0.4 MG, 1X/DAY
     Route: 065
  11. CANDESARTAN CILEXETIL [Suspect]
     Active Substance: CANDESARTAN CILEXETIL
     Indication: Blood pressure abnormal
     Dosage: 32 MILLIGRAM, QD
     Route: 065
     Dates: end: 202102
  12. CHOLECALCIFEROL [Suspect]
     Active Substance: CHOLECALCIFEROL
     Indication: Product used for unknown indication
     Dosage: UNK
     Route: 065
  13. HYGROTON [Suspect]
     Active Substance: CHLORTHALIDONE
     Indication: Blood pressure abnormal
     Dosage: 0.5 DF, QD
     Route: 065
  14. COTRIMOXAZOLE [Suspect]
     Active Substance: SULFAMETHOXAZOLE\TRIMETHOPRIM
     Indication: Product used for unknown indication
     Dosage: 480 MILLIGRAM
     Route: 065
     Dates: end: 20140401
  15. NITRENDIPINE [Suspect]
     Active Substance: NITRENDIPINE
     Indication: Blood pressure abnormal
     Dosage: 20 MILLIGRAM, QD
     Route: 065
  16. NITRENDIPINE [Suspect]
     Active Substance: NITRENDIPINE
     Indication: Blood pressure measurement
     Dosage: 20 MG, 2X/DAY
     Route: 065
  17. NITRENDIPINE [Suspect]
     Active Substance: NITRENDIPINE
     Dosage: 2 MILLIGRAM, QD (IN THE MORNING AFTER ABOUT 1 TO 2 HOURS)
     Route: 065
  18. NITRENDIPINE [Suspect]
     Active Substance: NITRENDIPINE
     Dosage: 10 MILLIGRAM, BID
     Route: 065
  19. NITRENDIPINE [Suspect]
     Active Substance: NITRENDIPINE
     Dosage: 20 MG BID
     Route: 065
  20. NITRENDIPINE [Suspect]
     Active Substance: NITRENDIPINE
     Dosage: 2 DF (20 MG), QD
     Route: 065
  21. NITRENDIPINE [Suspect]
     Active Substance: NITRENDIPINE
     Dosage: 40 MILLIGRAM, QD
  22. AMPHOTERICIN B [Suspect]
     Active Substance: AMPHOTERICIN B
     Indication: Product used for unknown indication
     Dosage: 1 DF, TID
     Route: 065
     Dates: end: 20140729
  23. FERROUS GLYCINE SULFATE [Suspect]
     Active Substance: FERROUS GLYCINE SULFATE
     Indication: Product used for unknown indication
     Dosage: 100 MILLIGRAM, QD
     Route: 065
     Dates: end: 20150610
  24. MYFORTIC [Suspect]
     Active Substance: MYCOPHENOLATE SODIUM
     Indication: Transplant
     Dosage: 1 DF, BID
     Route: 065
  25. TACROLIMUS [Suspect]
     Active Substance: TACROLIMUS
     Indication: Transplant
     Dosage: 1 MILLIGRAM, Q12H
     Route: 065
  26. TACROLIMUS [Suspect]
     Active Substance: TACROLIMUS
     Dosage: 0.5 MILLIGRAM, BID
     Route: 065
  27. PROGRAF [Suspect]
     Active Substance: TACROLIMUS
     Indication: Transplant
     Dosage: 0.5 MG, BID
     Route: 065
  28. PROGRAF [Suspect]
     Active Substance: TACROLIMUS
     Dosage: 1 MG, 1X/DAY
     Route: 065
     Dates: end: 2018
  29. PROGRAF [Suspect]
     Active Substance: TACROLIMUS
     Dosage: 1 MILLIGRAM, QD
     Route: 065
  30. CARVEDILOL [Suspect]
     Active Substance: CARVEDILOL
     Indication: Blood pressure abnormal
     Dosage: 25 MG, QD (1-0-0)
     Route: 065
  31. CARVEDILOL [Suspect]
     Active Substance: CARVEDILOL
     Dosage: 25 MG, QD (0-0-1-0)
     Route: 065
  32. CARVEDILOL [Suspect]
     Active Substance: CARVEDILOL
     Dosage: UNK, 25 MG, (0.5 -0-0)
     Route: 065
  33. CARVEDILOL [Suspect]
     Active Substance: CARVEDILOL
     Dosage: UNK, 25 MG, (0.5 -0-1-0)
     Route: 065
  34. CARVEDILOL [Suspect]
     Active Substance: CARVEDILOL
     Dosage: 25 UNK (1/2 -0-1-0)
     Route: 065
  35. CARVEDILOL [Suspect]
     Active Substance: CARVEDILOL
     Dosage: 25 UNK (1/2 -0-0)
  36. SODIUM BICARBONATE [Suspect]
     Active Substance: SODIUM BICARBONATE
     Indication: Product used for unknown indication
     Dosage: 1 GRAM, QD
     Route: 065
  37. FUROSEMIDE [Suspect]
     Active Substance: FUROSEMIDE
     Indication: Fluid retention
     Dosage: 40 MILLIGRAM, PRN
     Route: 065
  38. ARANESP [Suspect]
     Active Substance: DARBEPOETIN ALFA
     Indication: Product used for unknown indication
     Dosage: 10 MG, WEEKLY
     Route: 065
     Dates: end: 20141210
  39. MARCUMAR [Suspect]
     Active Substance: PHENPROCOUMON
     Indication: Cardiac disorder
     Dosage: 0.5 DF
     Route: 065
  40. MARCUMAR [Suspect]
     Active Substance: PHENPROCOUMON
     Indication: Anticoagulant therapy
     Dosage: UNK (0-0-1/2-0 -1)
     Route: 048
  41. FLUVASTATIN [Suspect]
     Active Substance: FLUVASTATIN SODIUM
     Indication: Blood cholesterol abnormal
     Dosage: UNK
     Route: 065
  42. CALCIUM CARBONATE\CHOLECALCIFEROL [Suspect]
     Active Substance: CALCIUM CARBONATE\CHOLECALCIFEROL
     Indication: Product used for unknown indication
     Dosage: 1 DF, BID
     Route: 065
     Dates: end: 20170729
  43. TAMSULOSIN HYDROCHLORIDE [Suspect]
     Active Substance: TAMSULOSIN HYDROCHLORIDE
     Indication: Prostate infection
     Dosage: 0.4 MILLIGRAM, QD
     Route: 065
  44. VALCYTE [Suspect]
     Active Substance: VALGANCICLOVIR HYDROCHLORIDE
     Indication: Product used for unknown indication
     Dosage: 450 MILLIGRAM, QD
     Route: 065
     Dates: end: 20140801
  45. CANDESARTAN CILEXETIL [Suspect]
     Active Substance: CANDESARTAN CILEXETIL
     Indication: Blood pressure abnormal
     Dosage: 32 MILLIGRAM, QD
     Route: 065
     Dates: end: 20210226
  46. TORSEMIDE [Suspect]
     Active Substance: TORSEMIDE
     Indication: Product used for unknown indication
     Dosage: 0.5 DF
     Route: 065
  47. DIGITOXIN [Suspect]
     Active Substance: DIGITOXIN
     Indication: Cardiac disorder
     Dosage: 1 DF, QD(NOT ON SUNDAYS)
     Route: 065
  48. DIGITOXIN [Suspect]
     Active Substance: DIGITOXIN
     Dosage: 16 MILLIGRAM, QD
     Route: 065
  49. DIGITOXIN [Suspect]
     Active Substance: DIGITOXIN
     Dosage: 8 MILLIGRAM
     Route: 065
  50. DIGITOXIN [Suspect]
     Active Substance: DIGITOXIN
     Dosage: 4 MILLIGRAM
     Route: 065
  51. CARVEDILOL [Suspect]
     Active Substance: CARVEDILOL
     Indication: Blood pressure abnormal
     Dosage: 25 MILLIGRAM
     Route: 065
  52. CARVEDILOL [Suspect]
     Active Substance: CARVEDILOL
     Dosage: 25 MILLIGRAM, QD
     Route: 065
  53. CHOLECALCIFEROL [Suspect]
     Active Substance: CHOLECALCIFEROL
     Indication: Product used for unknown indication
     Dosage: UNK
     Route: 065
  54. SODIUM BICARBONATE [Suspect]
     Active Substance: SODIUM BICARBONATE
     Indication: Product used for unknown indication
     Dosage: 1 G, 1X/DAY
     Route: 065
  55. VALGANCICLOVIR HYDROCHLORIDE [Suspect]
     Active Substance: VALGANCICLOVIR HYDROCHLORIDE
     Indication: Product used for unknown indication
     Dosage: 450 MILLIGRAM, QD
     Route: 065
  56. CALCIUM CARBONATE [Suspect]
     Active Substance: CALCIUM CARBONATE
     Dosage: UNK
     Route: 065

REACTIONS (69)
  - Atrial fibrillation [Not Recovered/Not Resolved]
  - Renal cyst haemorrhage [Not Recovered/Not Resolved]
  - Blood pressure fluctuation [Unknown]
  - Aortic arteriosclerosis [Unknown]
  - Haemorrhage [Unknown]
  - Left ventricular hypertrophy [Unknown]
  - Renal artery stenosis [Unknown]
  - Spinal osteoarthritis [Unknown]
  - Carotid arteriosclerosis [Unknown]
  - Pulmonary hypertension [Unknown]
  - Hepatic steatosis [Unknown]
  - Basal cell carcinoma [Recovered/Resolved]
  - Presyncope [Unknown]
  - Delayed graft function [Unknown]
  - Squamous cell carcinoma of skin [Recovered/Resolved]
  - Chronic kidney disease [Unknown]
  - Benign prostatic hyperplasia [Unknown]
  - Arteriosclerosis [Unknown]
  - Actinic keratosis [Unknown]
  - Spinal stenosis [Unknown]
  - COVID-19 [Unknown]
  - Swelling [Unknown]
  - Bradycardia [Unknown]
  - Diverticulum intestinal [Unknown]
  - Dizziness [Unknown]
  - Vascular anastomotic haemorrhage [Unknown]
  - Glycosylated haemoglobin increased [Unknown]
  - Rectal prolapse [Unknown]
  - Restless legs syndrome [Unknown]
  - Red blood cell count decreased [Recovered/Resolved]
  - Gastrooesophageal reflux disease [Unknown]
  - Hypertension [Unknown]
  - Overdose [Unknown]
  - Aortic dilatation [Unknown]
  - Hyperparathyroidism secondary [Unknown]
  - Activated partial thromboplastin time prolonged [Unknown]
  - Intervertebral disc space narrowing [Unknown]
  - Vascular compression [Unknown]
  - Aortic valve incompetence [Unknown]
  - Oedema peripheral [Unknown]
  - Hepatosplenomegaly [Unknown]
  - Blood potassium increased [Unknown]
  - Incorrect dose administered [Unknown]
  - Arterial thrombosis [Unknown]
  - Metabolic acidosis [Unknown]
  - Restlessness [Unknown]
  - Blood 25-hydroxycholecalciferol decreased [Recovered/Resolved]
  - Mean cell volume increased [Unknown]
  - Anal cyst [Unknown]
  - Myalgia [Unknown]
  - Vena cava injury [Unknown]
  - Complications of transplanted kidney [Unknown]
  - Abdominal wall haemorrhage [Unknown]
  - Venous thrombosis [Unknown]
  - Muscle disorder [Unknown]
  - Haemorrhoids [Unknown]
  - C-reactive protein increased [Unknown]
  - Haemoglobin decreased [Recovered/Resolved]
  - Swelling of eyelid [Unknown]
  - Large intestine polyp [Unknown]
  - Pancreatic cystadenoma [Unknown]
  - Renal cyst [Unknown]
  - Vertigo [Unknown]
  - Atrioventricular block [Unknown]
  - Headache [Unknown]
  - Drug ineffective [Unknown]
  - Insomnia [Unknown]
  - Swelling face [Unknown]
  - Hepatic cyst [Unknown]

NARRATIVE: CASE EVENT DATE: 20130401
